FAERS Safety Report 6298924-6 (Version None)
Quarter: 2009Q3

REPORT INFORMATION
  Report Type: 
  Country: None (occurrence: None)
  Receive Date: 20090806
  Receipt Date: 20090729
  Transmission Date: 20100115
  Serious: Yes (Other)
  Sender: FDA-Public Use
  Company Number: US-JNJFOC-20090800072

PATIENT
  Sex: Female
  Weight: 108.86 kg

DRUGS (12)
  1. DURAGESIC-100 [Suspect]
     Indication: BACK PAIN
     Route: 062
  2. XANAX [Suspect]
     Route: 048
  3. XANAX [Suspect]
     Indication: ANXIETY
     Route: 048
  4. PEPCID [Concomitant]
     Indication: GASTRIC DISORDER
     Route: 048
  5. PERCOCET [Concomitant]
     Indication: BREAKTHROUGH PAIN
     Dosage: AS NEEDED
     Route: 048
  6. POTASSIUM CHLORIDE [Concomitant]
     Indication: BLOOD POTASSIUM DECREASED
     Dosage: 10 MQ
     Route: 048
  7. LEVEMIR [Concomitant]
     Indication: DIABETES MELLITUS
     Dosage: 55 UNITS
     Route: 058
  8. TOPROL-XL [Concomitant]
     Indication: HYPERTENSION
     Route: 048
  9. ACTOS [Concomitant]
     Indication: DIABETES MELLITUS
     Route: 048
  10. CINNAMON [Concomitant]
     Indication: BLOOD CHOLESTEROL INCREASED
     Dosage: 1 TEASPOON
     Route: 048
  11. ZAROXOLYNE [Concomitant]
     Indication: ELECTROLYTE IMBALANCE
     Route: 048
  12. HUMALOG [Concomitant]
     Indication: DIABETES MELLITUS
     Route: 058

REACTIONS (6)
  - DYSPNOEA [None]
  - NAUSEA [None]
  - OEDEMA PERIPHERAL [None]
  - PAIN [None]
  - PYREXIA [None]
  - VITAMIN D DECREASED [None]
